FAERS Safety Report 11167191 (Version 1)
Quarter: 2015Q2

REPORT INFORMATION
  Report Type: Report from Study
  Country: NO (occurrence: None)
  Receive Date: 20150603
  Receipt Date: 20150603
  Transmission Date: 20150821
  Serious: Yes (Hospitalization)
  Sender: FDA-Public Use
  Company Number: 2014DEPNO00601

PATIENT

DRUGS (3)
  1. ONDANSETRON HCL (ONDANSETRON HYDROCHLORIDE) [Suspect]
     Active Substance: ONDANSETRON HYDROCHLORIDE
     Indication: DIFFUSE LARGE B-CELL LYMPHOMA
     Route: 048
     Dates: start: 20140114
  2. DEPOCYT [Suspect]
     Active Substance: CYTARABINE
     Indication: DIFFUSE LARGE B-CELL LYMPHOMA
     Dosage: PER PROTOCOL, 50 MG ADMINISTERED ON CYCLES ONE, THREE AND FIVE (ONE DOSE PER CYCLE), INTRATHECAL
     Route: 037
     Dates: start: 20140114, end: 20140316
  3. VINCRISTINE (VINCRISTINE SULFATE) [Suspect]
     Active Substance: VINCRISTINE SULFATE
     Indication: DIFFUSE LARGE B-CELL LYMPHOMA
     Route: 042

REACTIONS (7)
  - Diplopia [None]
  - Nausea [None]
  - Headache [None]
  - Arachnoiditis [None]
  - Hypotension [None]
  - Constipation [None]
  - Dizziness [None]

NARRATIVE: CASE EVENT DATE: 20140404
